FAERS Safety Report 25811605 (Version 1)
Quarter: 2025Q3

REPORT INFORMATION
  Report Type: Spontaneous
  Country: CN (occurrence: CN)
  Receive Date: 20250917
  Receipt Date: 20250917
  Transmission Date: 20251021
  Serious: Yes (Other)
  Sender: ACCORD
  Company Number: CN-MLMSERVICE-20250901-PI629537-00189-2

PATIENT
  Age: 27 Year
  Sex: Male

DRUGS (2)
  1. LEVETIRACETAM [Suspect]
     Active Substance: LEVETIRACETAM
     Indication: Generalised tonic-clonic seizure
  2. LACTULOSE [Suspect]
     Active Substance: LACTULOSE
     Indication: Hyperammonaemia

REACTIONS (1)
  - Drug-induced liver injury [Recovering/Resolving]
